FAERS Safety Report 9983634 (Version 1)
Quarter: 2014Q1

REPORT INFORMATION
  Report Type: Spontaneous
  Country: US (occurrence: US)
  Receive Date: 20140307
  Receipt Date: 20140307
  Transmission Date: 20141002
  Serious: No
  Sender: FDA-Public Use
  Company Number: US-BAYER-2014-024009

PATIENT
  Age: 54 Year
  Sex: Female

DRUGS (1)
  1. AVELOX [Suspect]
     Indication: ENTEROCOLITIS INFECTIOUS
     Dosage: UNK
     Route: 048
     Dates: start: 20140211

REACTIONS (4)
  - Somnolence [None]
  - Somnolence [None]
  - Asthenia [None]
  - Feeling abnormal [None]
